FAERS Safety Report 17011602 (Version 1)
Quarter: 2019Q4

REPORT INFORMATION
  Report Type: Spontaneous
  Country: SE (occurrence: SE)
  Receive Date: 20191108
  Receipt Date: 20191108
  Transmission Date: 20200122
  Serious: Yes (Other)
  Sender: FDA-Public Use
  Company Number: SE-ALLERGAN-1944856US

PATIENT
  Sex: Male

DRUGS (8)
  1. CARIPRAZINE HCL - BP [Suspect]
     Active Substance: CARIPRAZINE HYDROCHLORIDE
     Indication: SCHIZOPHRENIA
     Dosage: 1.5 MG, TID
     Route: 048
     Dates: start: 20190509, end: 20190919
  2. SIMVASTATIN. [Concomitant]
     Active Substance: SIMVASTATIN
  3. LUNELAX [Concomitant]
     Active Substance: HERBALS\PLANTAGO OVATA LEAF
  4. METFORMIN [Concomitant]
     Active Substance: METFORMIN HYDROCHLORIDE
  5. TRILAFON DEKANOAT [Concomitant]
     Active Substance: PERPHENAZINE DECANOATE
     Dosage: 108 MG/ML
  6. PARGITAN [Concomitant]
     Active Substance: TRIHEXYPHENIDYL HYDROCHLORIDE
  7. CLOZAPINE. [Concomitant]
     Active Substance: CLOZAPINE
  8. METOPROLOL. [Concomitant]
     Active Substance: METOPROLOL

REACTIONS (3)
  - Formication [Not Recovered/Not Resolved]
  - Tic [Not Recovered/Not Resolved]
  - Musculoskeletal stiffness [Not Recovered/Not Resolved]

NARRATIVE: CASE EVENT DATE: 20190601
